FAERS Safety Report 15503706 (Version 1)
Quarter: 2018Q4

REPORT INFORMATION
  Report Type: Spontaneous
  Country: US (occurrence: US)
  Receive Date: 20181009
  Receipt Date: 20181009
  Transmission Date: 20190205
  Serious: Yes (Hospitalization)
  Sender: FDA-Public Use
  Company Number: None

PATIENT
  Age: 13 Year
  Sex: Male

DRUGS (1)
  1. BETHKIS [Suspect]
     Active Substance: TOBRAMYCIN
     Route: 055
     Dates: start: 20171129, end: 20181009

REACTIONS (2)
  - Pneumonia [None]
  - Rhinovirus infection [None]

NARRATIVE: CASE EVENT DATE: 20181009
